FAERS Safety Report 8520939-5 (Version None)
Quarter: 2012Q3

REPORT INFORMATION
  Report Type: 
  Country: None (occurrence: None)
  Receive Date: 20120719
  Receipt Date: 20120522
  Transmission Date: 20120928
  Serious: No
  Sender: FDA-Public Use
  Company Number: US-009507513-1207USA005027

PATIENT

DRUGS (2)
  1. MIRALAX [Suspect]
     Indication: PRODUCT USED FOR UNKNOWN INDICATION
  2. MIRALAX [Suspect]
     Indication: MEDICAL OBSERVATION
     Dosage: UNK, UNKNOWN

REACTIONS (1)
  - DRUG INEFFECTIVE [None]
